FAERS Safety Report 24307601 (Version 1)
Quarter: 2024Q3

REPORT INFORMATION
  Report Type: Spontaneous
  Country: US (occurrence: US)
  Receive Date: 20240911
  Receipt Date: 20240911
  Transmission Date: 20241017
  Serious: No
  Sender: TAKEDA
  Company Number: US-TAKEDA-2024TUS090134

PATIENT
  Sex: Male

DRUGS (2)
  1. EOHILIA [Suspect]
     Active Substance: BUDESONIDE
     Indication: Eosinophilic oesophagitis
     Dosage: 2 MILLIGRAM, BID
     Route: 048
  2. EOHILIA [Suspect]
     Active Substance: BUDESONIDE
     Indication: Proctitis

REACTIONS (2)
  - Proctalgia [Unknown]
  - Incorrect route of product administration [Unknown]
